FAERS Safety Report 23336466 (Version 1)
Quarter: 2023Q4

REPORT INFORMATION
  Report Type: Spontaneous
  Country: FR (occurrence: FR)
  Receive Date: 20231225
  Receipt Date: 20231225
  Transmission Date: 20240109
  Serious: Yes (Other)
  Sender: FDA-Public Use
  Company Number: None

PATIENT
  Age: 50 Year
  Sex: Male

DRUGS (3)
  1. RIFATER [Suspect]
     Active Substance: ISONIAZID\PYRAZINAMIDE\RIFAMPIN
     Indication: Tuberculosis
     Dosage: 6 DF, QD
     Route: 048
     Dates: start: 20230831, end: 20231101
  2. ETHAMBUTOL [Suspect]
     Active Substance: ETHAMBUTOL HYDROCHLORIDE
     Indication: Tuberculosis
     Dosage: 1500 MG, QD
     Route: 048
     Dates: start: 20230831, end: 20231101
  3. FYCOMPA [Concomitant]
     Active Substance: PERAMPANEL
     Dosage: 1 DF, QD
     Route: 048
     Dates: start: 20230831

REACTIONS (3)
  - Erectile dysfunction [Recovered/Resolved]
  - Constipation [Recovered/Resolved]
  - Nausea [Recovered/Resolved]

NARRATIVE: CASE EVENT DATE: 20231001
